FAERS Safety Report 10627032 (Version 4)
Quarter: 2015Q3

REPORT INFORMATION
  Report Type: Spontaneous
  Country: US (occurrence: US)
  Receive Date: 20141204
  Receipt Date: 20150709
  Transmission Date: 20151125
  Serious: Yes (Hospitalization, Other)
  Sender: FDA-Public Use
  Company Number: US-BAYER-2014-178908

PATIENT
  Age: 30 Year
  Sex: Female
  Weight: 102 kg

DRUGS (3)
  1. MIRENA [Suspect]
     Active Substance: LEVONORGESTREL
     Indication: CONTRACEPTION
     Dosage: 20 MCG/24HR, CONT
     Route: 015
     Dates: start: 20100712, end: 20140430
  2. NOVOLOG [Concomitant]
     Active Substance: INSULIN ASPART
     Dosage: UNK
     Dates: start: 2008
  3. SYNTHROID [Concomitant]
     Active Substance: LEVOTHYROXINE SODIUM
     Dosage: UNK
     Dates: start: 2008

REACTIONS (9)
  - Pelvic pain [None]
  - Embedded device [None]
  - Drug ineffective [None]
  - Drug diversion [None]
  - Injury [None]
  - Caesarean section [None]
  - Device difficult to use [None]
  - Pregnancy with contraceptive device [None]
  - Premature labour [None]

NARRATIVE: CASE EVENT DATE: 20111009
